FAERS Safety Report 5482151-6 (Version None)
Quarter: 2007Q4

REPORT INFORMATION
  Report Type: 
  Country: None (occurrence: None)
  Receive Date: 20071011
  Receipt Date: 20070928
  Transmission Date: 20080405
  Serious: Yes (Death)
  Sender: FDA-Public Use
  Company Number: US-JNJFOC-20071001821

PATIENT
  Age: 3 Month

DRUGS (6)
  1. ACETAMINOPHEN [Suspect]
  2. ACETAMINOPHEN [Suspect]
     Indication: NASOPHARYNGITIS
     Dosage: UNKNOWN
  3. PSEUDOEPHEDRINE HCL [Suspect]
     Indication: NASOPHARYNGITIS
     Dosage: UNKNOWN
  4. DEXTROMETHORPHAN HYDROBROMIDE [Suspect]
     Indication: NASOPHARYNGITIS
     Dosage: UNKNOWN
  5. EPHEDRINE SULFATE [Suspect]
     Indication: NASOPHARYNGITIS
     Dosage: UNKNOWN
  6. LEVORPHANOL TARTRATE [Suspect]
     Indication: NASOPHARYNGITIS
     Dosage: UNKNOWN

REACTIONS (5)
  - DRUG TOXICITY [None]
  - LUNG DISORDER [None]
  - OVERDOSE [None]
  - PETECHIAE [None]
  - SUDDEN INFANT DEATH SYNDROME [None]
